FAERS Safety Report 24404460 (Version 1)
Quarter: 2024Q4

REPORT INFORMATION
  Report Type: Report from Study
  Country: AU (occurrence: AU)
  Receive Date: 20241007
  Receipt Date: 20241007
  Transmission Date: 20250115
  Serious: No
  Sender: ROCHE
  Company Number: AU-ROCHE-3554888

PATIENT
  Age: 52 Year
  Sex: Female

DRUGS (3)
  1. GAZYVA [Suspect]
     Active Substance: OBINUTUZUMAB
     Indication: Angioedema
     Route: 042
  2. GAZYVA [Suspect]
     Active Substance: OBINUTUZUMAB
     Indication: Systemic lupus erythematosus
  3. GAZYVA [Suspect]
     Active Substance: OBINUTUZUMAB
     Indication: Treatment failure

REACTIONS (2)
  - Off label use [Unknown]
  - No adverse event [Unknown]
